FAERS Safety Report 23449217 (Version 2)
Quarter: 2024Q1

REPORT INFORMATION
  Report Type: Spontaneous
  Country: FR (occurrence: FR)
  Receive Date: 20240129
  Receipt Date: 20240215
  Transmission Date: 20240410
  Serious: Yes (Other)
  Sender: FDA-Public Use
  Company Number: FR-AFSSAPS-PP2024000002

PATIENT
  Age: 56 Year
  Sex: Female
  Weight: 89 kg

DRUGS (6)
  1. ACETAMINOPHEN [Suspect]
     Active Substance: ACETAMINOPHEN
     Indication: Pain
     Dosage: UNK (DOSE INCONNUE)
     Route: 048
  2. SIRTURO [Suspect]
     Active Substance: BEDAQUILINE FUMARATE
     Indication: Tuberculosis
     Dosage: 100 MILLIGRAM, TWO TIMES A DAY (100MG 2_FOIS PAR JOUR)
     Route: 030
     Dates: start: 20230901
  3. SIRTURO [Suspect]
     Active Substance: BEDAQUILINE FUMARATE
     Dosage: 100 MILLIGRAM, TWO TIMES A DAY (100MG 2_FOIS PAR JOUR)
     Route: 048
     Dates: start: 20230901
  4. DELAMANID [Concomitant]
     Active Substance: DELAMANID
     Indication: Tuberculosis
     Dosage: 400 MILLIGRAM, ONCE A DAY (400MG/J)
     Route: 048
     Dates: start: 20230901
  5. LINEZOLID [Concomitant]
     Active Substance: LINEZOLID
     Indication: Tuberculosis
     Dosage: UNK (DOSE INCONNUE)
     Route: 048
     Dates: start: 20230901
  6. MOXIFLOXACIN [Concomitant]
     Active Substance: MOXIFLOXACIN
     Indication: Tuberculosis
     Dosage: 600 MILLIGRAM, TWO TIMES A DAY (600MG/ 2 PAR JOUR)
     Route: 048
     Dates: start: 20230901

REACTIONS (1)
  - Hepatic cytolysis [Not Recovered/Not Resolved]

NARRATIVE: CASE EVENT DATE: 20231214
